FAERS Safety Report 4882974-8 (Version None)
Quarter: 2006Q1

REPORT INFORMATION
  Report Type: 
  Country: None (occurrence: None)
  Receive Date: 20060112
  Receipt Date: 20060104
  Transmission Date: 20060701
  Serious: Yes (Death, Hospitalization)
  Sender: FDA-Public Use
  Company Number: GXKR2006GB00451

PATIENT
  Age: 88 Year
  Sex: Female

DRUGS (13)
  1. CIPROFLOXACIN [Suspect]
     Indication: PSEUDOMONAS INFECTION
     Dosage: 500 MG, BID, ORAL
     Route: 048
     Dates: start: 20051112, end: 20051115
  2. CO-AMOXICLAV (NGX) (AMOXICILLIN, CLAVULANATE) [Suspect]
     Indication: LOWER RESPIRATORY TRACT INFECTION
     Dosage: 1.2 G, TID, INTRAVENOUS
     Route: 042
     Dates: start: 20051115, end: 20051118
  3. TRIMETHOPRIM [Suspect]
     Dosage: 200 MG, BID
     Dates: start: 20051105, end: 20051113
  4. CEPHRADINE (CEFRADINE) [Suspect]
     Indication: INFECTION
     Dosage: 1 G, QID, INTRAVENOUS
     Route: 042
     Dates: start: 20051106, end: 20051108
  5. GENTAMICIN [Suspect]
     Indication: PSEUDOMONAS INFECTION
     Dosage: 240 MG EVERY 36 HOURS
     Dates: start: 20051115, end: 20051118
  6. CLEXANE (ENOXAPARIN SODIUM, HEPARIN-FRACTION, SODIUM SALT) [Concomitant]
  7. ACETAMINOPHEN W/ CODEINE [Concomitant]
  8. ADCAL (CARBAZOCHROME) [Concomitant]
  9. ALENDRONIC ACID (ALENDRONIC ACID) [Concomitant]
  10. CYCLIZINE (CYCLIZINE) [Concomitant]
  11. FERROUS SULPHATE (FERROUS SULPHATE) [Concomitant]
  12. DIGOXIN [Concomitant]
  13. MOVICOL (MACROGOL, POTASSIUM CHLORIDE, SODIUM BICARBONATE, SODIUM CHLO [Concomitant]

REACTIONS (4)
  - CLOSTRIDIUM COLITIS [None]
  - GENERAL PHYSICAL HEALTH DETERIORATION [None]
  - LOWER RESPIRATORY TRACT INFECTION [None]
  - RENAL IMPAIRMENT [None]
